FAERS Safety Report 8294573-9 (Version None)
Quarter: 2012Q2

REPORT INFORMATION
  Report Type: 
  Country: None (occurrence: None)
  Receive Date: 20120418
  Receipt Date: 20120409
  Transmission Date: 20120825
  Serious: Yes (Death)
  Sender: FDA-Public Use
  Company Number: US-ACTELION-A-US2012-61537

PATIENT

DRUGS (4)
  1. TRACLEER [Suspect]
     Indication: PULMONARY ARTERIAL HYPERTENSION
     Dosage: UNK MG, UNK
     Route: 048
     Dates: start: 20031010, end: 20120212
  2. REVATIO [Concomitant]
  3. AGGRENOX [Concomitant]
  4. OXYGEN [Concomitant]

REACTIONS (1)
  - CARDIAC ARREST [None]
